FAERS Safety Report 15541381 (Version 3)
Quarter: 2018Q4

REPORT INFORMATION
  Report Type: Spontaneous
  Country: CN (occurrence: CN)
  Receive Date: 20181023
  Receipt Date: 20181116
  Transmission Date: 20190205
  Serious: Yes (Other)
  Sender: FDA-Public Use
  Company Number: CN-PROVELL PHARMACEUTICALS-2056828

PATIENT
  Sex: Female

DRUGS (2)
  1. EUTHYROX [Suspect]
     Active Substance: LEVOTHYROXINE SODIUM
     Indication: HYPOTHYROIDISM
     Route: 048
     Dates: start: 2013
  2. EUTHYROX [Suspect]
     Active Substance: LEVOTHYROXINE SODIUM
     Route: 048
     Dates: end: 2017

REACTIONS (10)
  - Lacrimation increased [Recovering/Resolving]
  - Diplopia [Recovered/Resolved]
  - Drug ineffective [None]
  - Eyelid oedema [Recovering/Resolving]
  - Vision blurred [Recovering/Resolving]
  - Gaze palsy [Recovering/Resolving]
  - Muscular weakness [Not Recovered/Not Resolved]
  - Suspected counterfeit product [None]
  - Visual impairment [Recovering/Resolving]
  - Eye disorder [Recovering/Resolving]

NARRATIVE: CASE EVENT DATE: 2015
